FAERS Safety Report 23923559 (Version 1)
Quarter: 2024Q2

REPORT INFORMATION
  Report Type: Spontaneous
  Country: US (occurrence: US)
  Receive Date: 20240531
  Receipt Date: 20240531
  Transmission Date: 20240716
  Serious: No
  Sender: FDA-Public Use
  Company Number: US-ARIS GLOBAL-AXS202404-000369

PATIENT

DRUGS (2)
  1. AUVELITY [Suspect]
     Active Substance: BUPROPION HYDROCHLORIDE\DEXTROMETHORPHAN HYDROBROMIDE
     Indication: Product used for unknown indication
     Dosage: STARTED TAKING DOUBLE DOSE EXPERIENCED EVENT AFTER ADMINISTERING THE MORNING DOSE
     Dates: start: 20240403
  2. AUVELITY [Suspect]
     Active Substance: BUPROPION HYDROCHLORIDE\DEXTROMETHORPHAN HYDROBROMIDE
     Dosage: UNKNOWN DOSE

REACTIONS (1)
  - Brain fog [Unknown]

NARRATIVE: CASE EVENT DATE: 20240403
